FAERS Safety Report 4676757-1 (Version None)
Quarter: 2005Q2

REPORT INFORMATION
  Report Type: 
  Country: None (occurrence: None)
  Receive Date: 20050527
  Receipt Date: 20050517
  Transmission Date: 20051028
  Serious: Yes (Other)
  Sender: FDA-Public Use
  Company Number: US-MERCK-0505USA02035

PATIENT
  Sex: Male

DRUGS (2)
  1. ZETIA [Suspect]
     Route: 048
  2. [THERAPY UNSPECIFIED] [Concomitant]
     Route: 065

REACTIONS (2)
  - MYOPATHY [None]
  - SYSTEMIC LUPUS ERYTHEMATOSUS [None]
